FAERS Safety Report 8433704-4 (Version None)
Quarter: 2012Q2

REPORT INFORMATION
  Report Type: 
  Country: None (occurrence: None)
  Receive Date: 20120613
  Receipt Date: 20120531
  Transmission Date: 20120825
  Serious: Yes (Other)
  Sender: FDA-Public Use
  Company Number: CHPA2012US004060

PATIENT
  Sex: Female

DRUGS (2)
  1. CLINDAMYCIN [Concomitant]
     Dosage: UNK, UNK
  2. EXCEDRIN (MIGRAINE) [Suspect]
     Indication: HEADACHE
     Dosage: 2 DF, ONCE/SINGLE
     Route: 048
     Dates: start: 20111026

REACTIONS (3)
  - GASTRITIS [None]
  - CELLULITIS [None]
  - MALAISE [None]
